FAERS Safety Report 10619346 (Version 1)
Quarter: 2014Q4

REPORT INFORMATION
  Report Type: Spontaneous
  Country: FR (occurrence: None)
  Receive Date: 20141126
  Receipt Date: 20141126
  Transmission Date: 20150529
  Serious: Yes (Life-Threatening)
  Sender: FDA-Public Use
  Company Number: 20142435

PATIENT
  Age: 65 Year
  Sex: Male

DRUGS (15)
  1. CETIRIZINE HYDROCHOLRIDE (CETIRIZINE HYDROCHOLRIDE) [Concomitant]
  2. METOJECT (METHOTREXATE) [Suspect]
     Active Substance: METHOTREXATE SODIUM
     Indication: RHEUMATOID ARTHRITIS
     Dosage: 1 X 1  DOSAGE FROM IN 1 WEEK
     Route: 058
     Dates: start: 2005, end: 201410
  3. LERCAN (LERCANIDIPINE HYDROCHLORIDE) [Concomitant]
  4. PREVISCAN (FLUINDIONE) [Concomitant]
     Active Substance: FLUINDIONE
  5. INIPOMP (PANTOPRAZOLE) [Concomitant]
  6. NOCTAMIDE (LORMETAZEPAM) [Concomitant]
  7. ORENCIA [Suspect]
     Active Substance: ABATACEPT
     Indication: RHEUMATOID ARTHRITIS
     Dosage: 1 X
     Route: 042
     Dates: start: 20140519, end: 20140919
  8. SPECIAFOLDINE (FOLIC ACID) [Concomitant]
     Active Substance: FOLIC ACID
  9. COAPROVEL (HYDROCHLOROTHIAZID, RBESARTAN) [Concomitant]
  10. ZOCOR [Concomitant]
     Active Substance: SIMVASTATIN
  11. LYRICA [Concomitant]
     Active Substance: PREGABALIN
  12. NOVONORM (REPAGLINIDE) [Concomitant]
  13. TOPALGIC (TRAMADOL) [Concomitant]
  14. DOLIPRANE [Concomitant]
     Active Substance: ACETAMINOPHEN
  15. CORTANCYL (PREDNISONE) [Concomitant]
     Active Substance: PREDNISONE

REACTIONS (2)
  - B-cell lymphoma [None]
  - Histiocytosis haematophagic [None]

NARRATIVE: CASE EVENT DATE: 201410
